FAERS Safety Report 5457037-3 (Version None)
Quarter: 2007Q3

REPORT INFORMATION
  Report Type: 
  Country: None (occurrence: None)
  Receive Date: 20070918
  Receipt Date: 20061226
  Transmission Date: 20080115
  Serious: No
  Sender: FDA-Public Use
  Company Number: US-ASTRAZENECA-2006UW28533

PATIENT
  Sex: Female

DRUGS (2)
  1. SEROQUEL [Suspect]
     Indication: BIPOLAR I DISORDER
     Route: 048
     Dates: start: 20061201
  2. SEROQUEL [Suspect]
     Route: 048
     Dates: start: 20061201

REACTIONS (2)
  - DIZZINESS POSTURAL [None]
  - SENSATION OF HEAVINESS [None]
